FAERS Safety Report 4888162-3 (Version None)
Quarter: 2006Q1

REPORT INFORMATION
  Report Type: 
  Country: None (occurrence: None)
  Receive Date: 20060119
  Receipt Date: 20060109
  Transmission Date: 20060701
  Serious: Yes (Hospitalization, Other)
  Sender: FDA-Public Use
  Company Number: 2006-01-0123

PATIENT
  Age: 22 Year
  Sex: Female

DRUGS (3)
  1. ALBUTEROL SULFATE [Suspect]
     Indication: ASTHMA
     Dosage: INHALATION
  2. METAPROTERENOL SULFATE [Suspect]
     Indication: ASTHMA
     Dosage: INHALATION
     Route: 055
  3. EDETATE DISODIUM [Suspect]
     Indication: ASTHMA
     Dosage: INHALATION
     Route: 055

REACTIONS (9)
  - BRONCHOSPASM PARADOXICAL [None]
  - DYSPHONIA [None]
  - LARYNGOSPASM [None]
  - OXYGEN SATURATION DECREASED [None]
  - RESPIRATORY DISTRESS [None]
  - STRIDOR [None]
  - TACHYCARDIA [None]
  - TACHYPNOEA [None]
  - TREMOR [None]
